FAERS Safety Report 23960123 (Version 1)
Quarter: 2024Q2

REPORT INFORMATION
  Report Type: Spontaneous
  Country: BR (occurrence: BR)
  Receive Date: 20240611
  Receipt Date: 20240611
  Transmission Date: 20240716
  Serious: Yes (Other)
  Sender: FDA-Public Use
  Company Number: BR-ALKEM LABORATORIES LIMITED-BR-ALKEM-2024-11882

PATIENT
  Age: 40 Year
  Sex: Male

DRUGS (6)
  1. AZATHIOPRINE [Suspect]
     Active Substance: AZATHIOPRINE
     Indication: Sympathetic ophthalmia
     Dosage: 1 MILLIGRAM/KILOGRAM, QD
     Route: 065
  2. DEXAMETHASONE [Concomitant]
     Active Substance: DEXAMETHASONE
     Indication: Sympathetic ophthalmia
     Dosage: 1 MILLIGRAM PER MILLILITRE, TID (EYE DROPS)
     Route: 065
  3. DEXAMETHASONE [Concomitant]
     Active Substance: DEXAMETHASONE
     Dosage: 1 MILLIGRAM PER MILLILITRE, TID
     Route: 061
  4. PREDNISONE [Concomitant]
     Active Substance: PREDNISONE
     Indication: Sympathetic ophthalmia
     Dosage: 0.5 MILLIGRAM/KILOGRAM, QD
     Route: 065
  5. PREDNISONE [Concomitant]
     Active Substance: PREDNISONE
     Dosage: 0.5 MILLIGRAM/KILOGRAM, QD
     Route: 048
  6. TROPICAMIDE [Concomitant]
     Active Substance: TROPICAMIDE
     Indication: Sympathetic ophthalmia
     Dosage: 1 MILLIGRAM PER MILLILITRE, QD
     Route: 061

REACTIONS (1)
  - Hepatitis [Unknown]
